FAERS Safety Report 8494473-5 (Version None)
Quarter: 2012Q3

REPORT INFORMATION
  Report Type: 
  Country: None (occurrence: None)
  Receive Date: 20120709
  Receipt Date: 20120628
  Transmission Date: 20120928
  Serious: No
  Sender: FDA-Public Use
  Company Number: FR-JNJFOC-20120700262

PATIENT
  Sex: Female

DRUGS (1)
  1. DURAGESIC-100 [Suspect]
     Indication: PRODUCT USED FOR UNKNOWN INDICATION
     Dosage: PATCH CUT IN HALF
     Route: 062

REACTIONS (2)
  - DRUG INTOLERANCE [None]
  - WRONG TECHNIQUE IN DRUG USAGE PROCESS [None]
